FAERS Safety Report 25540615 (Version 1)
Quarter: 2025Q3

REPORT INFORMATION
  Report Type: Spontaneous
  Country: EU (occurrence: US)
  Receive Date: 20250710
  Receipt Date: 20250710
  Transmission Date: 20251021
  Serious: Yes (Death)
  Sender: AMGEN
  Company Number: EU-AMGEN-USASP2025130138

PATIENT

DRUGS (1)
  1. RITUXIMAB [Suspect]
     Active Substance: RITUXIMAB
     Indication: Cryoglobulinaemia
     Route: 065

REACTIONS (3)
  - Malignant neoplasm progression [Fatal]
  - Drug effective for unapproved indication [Unknown]
  - Off label use [Unknown]
